FAERS Safety Report 19020300 (Version 1)
Quarter: 2021Q1

REPORT INFORMATION
  Report Type: Report from Study
  Country: US (occurrence: US)
  Receive Date: 20210317
  Receipt Date: 20210317
  Transmission Date: 20210420
  Serious: Yes (Other)
  Sender: FDA-Public Use
  Company Number: US-MYLANLABS-2021M1005920

PATIENT
  Sex: Female
  Weight: 100 kg

DRUGS (2)
  1. AMNESTEEM [Suspect]
     Active Substance: ISOTRETINOIN
     Indication: PRODUCT USED FOR UNKNOWN INDICATION
     Dosage: UNK
  2. CLARAVIS [Suspect]
     Active Substance: ISOTRETINOIN
     Indication: ACNE
     Dosage: 40 MILLIGRAM, BID
     Dates: start: 20200721, end: 20201222

REACTIONS (5)
  - Insomnia [Unknown]
  - Disturbance in attention [Unknown]
  - Anhedonia [Unknown]
  - Drug intolerance [Unknown]
  - Depression [Unknown]
